FAERS Safety Report 5160091-X (Version None)
Quarter: 2006Q4

REPORT INFORMATION
  Report Type: 
  Country: None (occurrence: None)
  Receive Date: 20061129
  Receipt Date: 20060926
  Transmission Date: 20070319
  Serious: No
  Sender: FDA-Public Use
  Company Number: US-GLAXOSMITHKLINE-A0621463A

PATIENT
  Age: 53 Year
  Sex: Female

DRUGS (2)
  1. WELLBUTRIN SR [Suspect]
     Indication: DEPRESSION
     Dosage: 100MG PER DAY
     Route: 048
  2. EFFEXOR [Concomitant]

REACTIONS (5)
  - ABNORMAL DREAMS [None]
  - DISTURBANCE IN ATTENTION [None]
  - DRUG WITHDRAWAL SYNDROME [None]
  - FATIGUE [None]
  - INITIAL INSOMNIA [None]
